FAERS Safety Report 10032724 (Version 2)
Quarter: 2014Q1

REPORT INFORMATION
  Report Type: Spontaneous
  Country: CH (occurrence: CH)
  Receive Date: 20140324
  Receipt Date: 20140326
  Transmission Date: 20141002
  Serious: Yes (Other)
  Sender: FDA-Public Use
  Company Number: CH-GLAXOSMITHKLINE-B0978976A

PATIENT
  Sex: Male

DRUGS (2)
  1. LAMICTAL [Suspect]
     Indication: EPILEPSY
     Route: 048
  2. KEPPRA [Concomitant]
     Indication: EPILEPSY
     Route: 048

REACTIONS (4)
  - Lymphoma [Unknown]
  - Pigmentation disorder [Not Recovered/Not Resolved]
  - Skin reaction [Recovered/Resolved]
  - Inflammation [Recovered/Resolved]
